FAERS Safety Report 8401032-9 (Version None)
Quarter: 2012Q2

REPORT INFORMATION
  Report Type: 
  Country: None (occurrence: None)
  Receive Date: 20120601
  Receipt Date: 20120521
  Transmission Date: 20120825
  Serious: Yes (Hospitalization, Other)
  Sender: FDA-Public Use
  Company Number: US-VERTEX PHARMACEUTICALS INC.-AE-2012-007603

PATIENT
  Sex: Male
  Weight: 87.27 kg

DRUGS (3)
  1. RIBAVIRIN [Concomitant]
     Indication: HEPATITIS C
     Route: 048
  2. INCIVEK [Suspect]
     Indication: HEPATITIS C
     Dates: start: 20110107, end: 20110110
  3. PEGASYS [Concomitant]
     Indication: HEPATITIS C

REACTIONS (7)
  - ANAEMIA [None]
  - FATIGUE [None]
  - WRIST FRACTURE [None]
  - LIVER FUNCTION TEST ABNORMAL [None]
  - ASTHENIA [None]
  - DIARRHOEA [None]
  - HAEMORRHOIDS [None]
